FAERS Safety Report 4569955-9 (Version None)
Quarter: 2005Q1

REPORT INFORMATION
  Report Type: 
  Country: None (occurrence: None)
  Receive Date: 20050204
  Receipt Date: 20050124
  Transmission Date: 20050727
  Serious: Yes (Death)
  Sender: FDA-Public Use
  Company Number: US-JNJFOC-20041201396

PATIENT
  Sex: Female
  Weight: 38.56 kg

DRUGS (14)
  1. REMICADE [Suspect]
     Route: 042
  2. REMICADE [Suspect]
     Indication: RHEUMATOID ARTHRITIS
     Route: 042
  3. PREDNISONE [Concomitant]
  4. PRAVACHOL [Concomitant]
  5. PRILOSEC [Concomitant]
  6. SYNTHROID [Concomitant]
  7. ESTRACE [Concomitant]
  8. BEXTRA [Concomitant]
  9. TRAZADONE [Concomitant]
  10. PLAQUENIL [Concomitant]
  11. IMURAN [Concomitant]
  12. VICODIN [Concomitant]
  13. VICODIN [Concomitant]
  14. IRON [Concomitant]

REACTIONS (1)
  - DEATH [None]
